FAERS Safety Report 21999809 (Version 2)
Quarter: 2023Q1

REPORT INFORMATION
  Report Type: Spontaneous
  Country: AU (occurrence: AU)
  Receive Date: 20230216
  Receipt Date: 20230217
  Transmission Date: 20230418
  Serious: Yes (Other)
  Sender: FDA-Public Use
  Company Number: AU-Atnahs Limited-ATNAHS20220405011

PATIENT
  Age: 34 Year
  Sex: Female

DRUGS (19)
  1. DIAZEPAM [Suspect]
     Active Substance: DIAZEPAM
     Indication: Dyspnoea
  2. CLOZARIL [Suspect]
     Active Substance: CLOZAPINE
     Indication: Schizophrenia
     Dates: start: 20170217, end: 2018
  3. CLOZARIL [Suspect]
     Active Substance: CLOZAPINE
     Dates: start: 20170217, end: 2018
  4. CLOZARIL [Suspect]
     Active Substance: CLOZAPINE
  5. FUROSEMIDE [Suspect]
     Active Substance: FUROSEMIDE
     Indication: Dyspnoea
  6. TOPIRAMATE [Suspect]
     Active Substance: TOPIRAMATE
     Indication: Dyspnoea
  7. VALPROIC ACID [Suspect]
     Active Substance: VALPROIC ACID
     Indication: Dyspnoea
  8. VALPROIC ACID [Suspect]
     Active Substance: VALPROIC ACID
     Indication: Tachycardia
  9. METFORMIN [Suspect]
     Active Substance: METFORMIN HYDROCHLORIDE
     Indication: Dyspnoea
  10. AMISULPRIDE [Suspect]
     Active Substance: AMISULPRIDE
     Indication: Product used for unknown indication
  11. MIRTAZAPINE [Suspect]
     Active Substance: MIRTAZAPINE
     Indication: Product used for unknown indication
  12. ONDANSETRON [Concomitant]
     Active Substance: ONDANSETRON
     Indication: Product used for unknown indication
  13. UNSPECIFIED INGREDIENT [Concomitant]
     Active Substance: UNSPECIFIED INGREDIENT
     Indication: Product used for unknown indication
  14. ZOPICLONE [Concomitant]
     Active Substance: ZOPICLONE
     Indication: Product used for unknown indication
  15. NICOTINE [Concomitant]
     Active Substance: NICOTINE
     Indication: Product used for unknown indication
  16. OLANZAPINE [Concomitant]
     Active Substance: OLANZAPINE
     Indication: Product used for unknown indication
  17. DULOXETINE [Concomitant]
     Active Substance: DULOXETINE
     Indication: Product used for unknown indication
  18. PROPRANOLOL HYDROCHLORIDE [Concomitant]
     Active Substance: PROPRANOLOL HYDROCHLORIDE
     Indication: Product used for unknown indication
  19. PRAZOSIN [Concomitant]
     Active Substance: PRAZOSIN
     Indication: Product used for unknown indication

REACTIONS (24)
  - Antipsychotic drug level decreased [Unknown]
  - Aspartate aminotransferase decreased [Unknown]
  - Blood alkaline phosphatase increased [Unknown]
  - Blood bilirubin decreased [Unknown]
  - Mean cell volume decreased [Unknown]
  - Red cell distribution width increased [Unknown]
  - Blood cholesterol increased [Unknown]
  - Blood glucose increased [Unknown]
  - Blood phosphorus increased [Unknown]
  - Blood prolactin increased [Unknown]
  - C-reactive protein increased [Unknown]
  - Haematocrit decreased [Unknown]
  - Haemoglobin decreased [Unknown]
  - Mean cell haemoglobin concentration decreased [Unknown]
  - Mean cell haemoglobin decreased [Unknown]
  - Mean cell volume decreased [Unknown]
  - Myocarditis [Unknown]
  - Red cell distribution width increased [Unknown]
  - Serum ferritin decreased [Unknown]
  - Sinus tachycardia [Unknown]
  - Thyroxine free decreased [Unknown]
  - Transferrin saturation decreased [Unknown]
  - Troponin increased [Unknown]
  - Off label use [Unknown]

NARRATIVE: CASE EVENT DATE: 20170722
